FAERS Safety Report 4539815-8 (Version None)
Quarter: 2004Q4

REPORT INFORMATION
  Report Type: 
  Country: None (occurrence: None)
  Receive Date: 20041223
  Receipt Date: 20041215
  Transmission Date: 20050328
  Serious: Yes (Hospitalization)
  Sender: FDA-Public Use
  Company Number: SU-2004-002915

PATIENT
  Age: 74 Year
  Sex: Female
  Weight: 67.9942 kg

DRUGS (16)
  1. BENICAR [Suspect]
     Indication: HYPERTENSION
     Dosage: 20 MG QD PO
     Route: 048
     Dates: start: 20040920, end: 20041004
  2. ENOXAPARIN SODIUM [Suspect]
     Dosage: 68 MG SC
     Route: 058
     Dates: start: 20040922, end: 20040922
  3. INTEGRILIN [Suspect]
     Dosage: 180 MCG ONCE PU
     Dates: start: 20040922, end: 20040922
  4. INTEGRILIN [Suspect]
     Dosage: 2 MG IV
     Route: 042
     Dates: start: 20040922, end: 20040923
  5. ASPIRIN [Concomitant]
  6. PLAVIX [Concomitant]
  7. ATENOLOL [Concomitant]
  8. FLEXERIL [Concomitant]
  9. LOVASTATIN [Concomitant]
  10. DOCUSATE [Concomitant]
  11. MINITRAN [Concomitant]
  12. LORAZEPAM [Concomitant]
  13. TRIAZOLAM [Concomitant]
  14. MECLIZINE [Concomitant]
  15. PROTONIX [Concomitant]
  16. ZYRTEC [Concomitant]

REACTIONS (4)
  - BRADYCARDIA [None]
  - DYSPNOEA [None]
  - HYPERKALAEMIA [None]
  - RENAL FAILURE [None]
